FAERS Safety Report 20077879 (Version 1)
Quarter: 2021Q4

REPORT INFORMATION
  Report Type: Spontaneous
  Country: CN (occurrence: CN)
  Receive Date: 20211116
  Receipt Date: 20211116
  Transmission Date: 20220304
  Serious: Yes (Other)
  Sender: FDA-Public Use
  Company Number: CN-BAXTER-2021BAX035714

PATIENT
  Age: 55 Year
  Sex: Female

DRUGS (6)
  1. CYCLOPHOSPHAMIDE [Suspect]
     Active Substance: CYCLOPHOSPHAMIDE
     Indication: Fallopian tube cancer
     Dosage: CYCLOPHOSPHAMIDE 0.8G + 0.9% SODIUM CHLORIDE 500ML
     Route: 041
     Dates: start: 20211018, end: 20211018
  2. CYCLOPHOSPHAMIDE [Suspect]
     Active Substance: CYCLOPHOSPHAMIDE
     Dosage: DOSE RE-INTRODUCED
     Route: 041
  3. SODIUM CHLORIDE [Suspect]
     Active Substance: SODIUM CHLORIDE
     Indication: Medication dilution
     Dosage: CYCLOPHOSPHAMIDE FOR INJECTION 0.8G + 0.9% SODIUM CHLORIDE INJECTION 500ML
     Route: 041
     Dates: start: 20211018, end: 20211018
  4. SODIUM CHLORIDE [Suspect]
     Active Substance: SODIUM CHLORIDE
     Dosage: VP-16 ETOPOSIDE INJECTION 0.1G + 0.9% SODIUM CHLORIDE INJECTION 500ML
     Route: 041
     Dates: start: 20211018, end: 20211020
  5. ETOPOSIDE [Suspect]
     Active Substance: ETOPOSIDE
     Indication: Fallopian tube cancer
     Dosage: VP-16 ETOPOSIDE INJECTION 0.1G + 0.9% SODIUM CHLORIDE INJECTION 500ML
     Route: 041
     Dates: start: 20211018, end: 20211020
  6. ETOPOSIDE [Suspect]
     Active Substance: ETOPOSIDE
     Dosage: DOSE RE-INTRODUCED
     Route: 041

REACTIONS (1)
  - Platelet count decreased [Unknown]

NARRATIVE: CASE EVENT DATE: 20211025
